FAERS Safety Report 24915593 (Version 1)
Quarter: 2025Q1

REPORT INFORMATION
  Report Type: Spontaneous
  Country: US (occurrence: US)
  Receive Date: 20250203
  Receipt Date: 20250203
  Transmission Date: 20250408
  Serious: Yes (Other)
  Sender: AUROBINDO
  Company Number: US-AUROBINDO-AUR-APL-2025-004347

PATIENT
  Age: 71 Year
  Sex: Male

DRUGS (4)
  1. BUDESONIDE [Suspect]
     Active Substance: BUDESONIDE
     Indication: Rotavirus infection
     Route: 065
  2. BUDESONIDE [Suspect]
     Active Substance: BUDESONIDE
     Indication: Norovirus infection
  3. MESALAMINE [Suspect]
     Active Substance: MESALAMINE
     Indication: Rotavirus infection
     Route: 065
  4. MESALAMINE [Suspect]
     Active Substance: MESALAMINE
     Indication: Norovirus infection

REACTIONS (1)
  - Cytomegalovirus colitis [Recovering/Resolving]
